FAERS Safety Report 9258408 (Version 1)
Quarter: 2013Q1

REPORT INFORMATION
  Report Type: Spontaneous
  Country: US (occurrence: None)
  Receive Date: 20121212
  Receipt Date: 20121212
  Transmission Date: 20140127
  Serious: No
  Sender: FDA-Public Use
  Company Number: 1208USA009233

PATIENT
  Sex: Male
  Weight: 113.4 kg

DRUGS (7)
  1. VICTRELIS [Suspect]
     Indication: HEPATITIS C
     Dosage: TAKE 4 CAPSULES (800MG) THREE TIMES A DAY START ON WEEK 5, ORAL
  2. REBETOL [Suspect]
     Dosage: 200MG, UNK
  3. PEGASYS (PEGINTERFERON ALFA-2A) INJECTION [Concomitant]
  4. DEPAKOTE (DIVALPROEX SODIUM) TABLETS [Concomitant]
  5. PROMETHAZINE (PROMETHAZINE) [Concomitant]
  6. TEMAZEPAM (TEMAZEPAM) CAPSULE [Concomitant]
  7. LEXAPRO (ESCITALOPRAM OXALATE) TABLET [Concomitant]

REACTIONS (6)
  - Dehydration [None]
  - Decreased appetite [None]
  - Nausea [None]
  - Insomnia [None]
  - Dry skin [None]
  - Fatigue [None]
